FAERS Safety Report 26172948 (Version 1)
Quarter: 2025Q4

REPORT INFORMATION
  Report Type: Spontaneous
  Country: US (occurrence: US)
  Receive Date: 20251218
  Receipt Date: 20251218
  Transmission Date: 20260118
  Serious: Yes (Other)
  Sender: BRISTOL-MYERS SQUIBB COMPANY
  Company Number: US-BRISTOL-MYERS SQUIBB COMPANY-2025-169314

PATIENT
  Age: 71 Year
  Sex: Male

DRUGS (2)
  1. LENALIDOMIDE [Suspect]
     Active Substance: LENALIDOMIDE
     Indication: Plasma cell myeloma
     Route: 048
  2. LENALIDOMIDE [Suspect]
     Active Substance: LENALIDOMIDE
     Dosage: TAKE 1 WHOLE CAPSULE BY MOUTH W/ OR W/O FOOD AT SAME TIME DAILY FOR 21 DAYS EVERY 28 DAY CYCLE DONT BREAK,OPEN, CHEW
     Route: 048
     Dates: start: 20251213

REACTIONS (2)
  - Gallbladder disorder [Recovered/Resolved]
  - Treatment delayed [Unknown]
